FAERS Safety Report 7367623-1 (Version None)
Quarter: 2011Q1

REPORT INFORMATION
  Report Type: 
  Country: None (occurrence: None)
  Receive Date: 20110322
  Receipt Date: 20110316
  Transmission Date: 20110831
  Serious: Yes (Other)
  Sender: FDA-Public Use
  Company Number: IN-PFIZER INC-2011055849

PATIENT
  Age: 38 Year
  Sex: Female

DRUGS (2)
  1. METRONIDAZOLE [Suspect]
     Indication: DIARRHOEA
     Dosage: 500 MG
  2. LOPERAMIDE [Concomitant]
     Indication: DIARRHOEA
     Dosage: 2 MG

REACTIONS (4)
  - SKIN LESION [None]
  - PRURITUS GENERALISED [None]
  - ERYTHEMA [None]
  - FACE OEDEMA [None]
